FAERS Safety Report 17533903 (Version 1)
Quarter: 2020Q1

REPORT INFORMATION
  Report Type: Spontaneous
  Country: US (occurrence: US)
  Receive Date: 20200312
  Receipt Date: 20200312
  Transmission Date: 20200409
  Serious: No
  Sender: FDA-Public Use
  Company Number: None

PATIENT
  Age: 57 Year
  Sex: Male
  Weight: 118 kg

DRUGS (12)
  1. POTASSIUM CITRATE ER 10MEQ TBCR [Concomitant]
  2. OMEPRAZOLE 40MG CAP [Concomitant]
  3. METHOTREXATE 50MG/2ML [Concomitant]
     Active Substance: METHOTREXATE
  4. FOLIC ACID 1MG TABS [Concomitant]
  5. LISINOPRIL 2.5MG TAB [Concomitant]
  6. ROSUVASTATIN 5MG TAB [Concomitant]
  7. TRIAMCINOLONE ACETONIDE 0.1% OINT [Concomitant]
  8. CLOBETASOL PROP 0.05% CREAM [Concomitant]
  9. FLUTICASONE PROP 50 SUSP (SPRAY) [Concomitant]
  10. FINASTERIDE 5MG TABS [Concomitant]
  11. HUMIRA [Suspect]
     Active Substance: ADALIMUMAB
     Indication: RHEUMATOID ARTHRITIS
     Dosage: ?          OTHER FREQUENCY:EVERY 14 DAYS;?
     Route: 058
     Dates: start: 20170301
  12. TAMSULOSIN 0.4MG CAPS [Concomitant]

REACTIONS (2)
  - Eczema [None]
  - Cutaneous T-cell lymphoma [None]
